FAERS Safety Report 24556419 (Version 2)
Quarter: 2024Q4

REPORT INFORMATION
  Report Type: Spontaneous
  Country: US (occurrence: US)
  Receive Date: 20241028
  Receipt Date: 20241204
  Transmission Date: 20250115
  Serious: Yes (Other)
  Sender: NOVO NORDISK
  Company Number: US-NOVOPROD-1302624

PATIENT
  Age: 16 Year
  Sex: Female
  Weight: 102 kg

DRUGS (6)
  1. OZEMPIC [Suspect]
     Active Substance: SEMAGLUTIDE
     Indication: Product used for unknown indication
     Dosage: 1 MG
     Route: 058
     Dates: end: 202312
  2. ONDANSETRON [Concomitant]
     Active Substance: ONDANSETRON
     Indication: Nausea
     Dosage: 1 TABLET EVERY 6-8 HOURS
     Dates: start: 20231219
  3. TAMFLU [Concomitant]
     Indication: Product used for unknown indication
     Dosage: 1 CAPSULE TWICE A DAY
     Route: 048
     Dates: start: 20221114
  4. HYDROCORTISONE [Concomitant]
     Active Substance: HYDROCORTISONE
     Indication: Arthropod bite
     Dosage: UNK
     Dates: start: 20210922
  5. ONDANSETRON ODT [ONDANSETRON] [Concomitant]
     Indication: Product used for unknown indication
     Dosage: UNK
     Dates: start: 20210102
  6. OZEMPIC [Suspect]
     Active Substance: SEMAGLUTIDE
     Indication: Product used for unknown indication
     Dosage: UNK
     Route: 058
     Dates: start: 20221229

REACTIONS (5)
  - Borderline mucinous tumour of ovary [Recovered/Resolved]
  - Pain [Unknown]
  - Constipation [Unknown]
  - Nausea [Unknown]
  - Product use issue [Unknown]

NARRATIVE: CASE EVENT DATE: 20240108
